FAERS Safety Report 4967206-4 (Version None)
Quarter: 2006Q2

REPORT INFORMATION
  Report Type: 
  Country: None (occurrence: None)
  Receive Date: 20060403
  Receipt Date: 20060318
  Transmission Date: 20061013
  Serious: Yes (Other)
  Sender: FDA-Public Use
  Company Number: 2006027531

PATIENT
  Age: 65 Year
  Sex: Female
  Weight: 79.3795 kg

DRUGS (14)
  1. VFEND [Suspect]
     Indication: IDIOPATHIC PULMONARY FIBROSIS
     Dosage: 400 MG (200 MG, 2 IN 1 D)
     Dates: start: 20051007
  2. CELEBREX [Suspect]
     Indication: OSTEOARTHRITIS
     Dosage: 200 MG (200 MG, DAILY INTERVAL: EVERY DAY)
     Dates: start: 20050101
  3. PREDNISONE TAB [Suspect]
     Indication: IDIOPATHIC PULMONARY FIBROSIS
     Dosage: 11 MG
  4. ACTIMMUNE (INTERFERON GAMMA) [Concomitant]
  5. NEURONTIN [Concomitant]
  6. PRAVACHOL [Concomitant]
  7. FOSAMAX [Concomitant]
  8. PREVACID [Concomitant]
  9. ACETYLCYSTEINE [Concomitant]
  10. IMURAN [Concomitant]
  11. VITAMIN B6 [Concomitant]
  12. CALCIUM CARBONATE [Concomitant]
  13. ALL OTHER THERAPEUTIC PRODUCTS [Concomitant]
  14. PREDNISONE ACETATE [Concomitant]

REACTIONS (10)
  - CATARACT [None]
  - CONDITION AGGRAVATED [None]
  - GLAUCOMA [None]
  - ILL-DEFINED DISORDER [None]
  - LUNG DISORDER [None]
  - PAIN [None]
  - SLEEP DISORDER [None]
  - VISUAL ACUITY REDUCED [None]
  - VISUAL DISTURBANCE [None]
  - VISUAL FIELD TESTS ABNORMAL [None]
